FAERS Safety Report 6637757-5 (Version None)
Quarter: 2010Q1

REPORT INFORMATION
  Report Type: 
  Country: None (occurrence: None)
  Receive Date: 20100312
  Receipt Date: 20100302
  Transmission Date: 20100710
  Serious: Yes (Death, Hospitalization, Other)
  Sender: FDA-Public Use
  Company Number: AUR-APU-2010-00647

PATIENT
  Age: 85 Year
  Sex: Female

DRUGS (5)
  1. CITALOPRAM HYDROBROMIDE [Suspect]
     Dosage: 20MG
     Dates: end: 20100218
  2. LOVASTATIN [Concomitant]
  3. LISINOPRIL [Concomitant]
  4. EXELON [Concomitant]
  5. NAMENDA [Concomitant]

REACTIONS (9)
  - ASTHENIA [None]
  - DEMENTIA ALZHEIMER'S TYPE [None]
  - DEPRESSED LEVEL OF CONSCIOUSNESS [None]
  - DRUG DISPENSING ERROR [None]
  - ENURESIS [None]
  - FUNGAL INFECTION [None]
  - HYPERSOMNIA [None]
  - INCORRECT DOSE ADMINISTERED [None]
  - URINARY TRACT INFECTION [None]
